FAERS Safety Report 8187443 (Version 2)
Quarter: 2012Q4

REPORT INFORMATION
  Report Type: 
  Country: US (occurrence: US)
  Receive Date: 20111018
  Receipt Date: 20121120
  Transmission Date: 20130627
  Serious: No
  Sender: FDA-Public Use
  Company Number: US-ASTRAZENECA-2009SE21582

PATIENT
  Age: 63 Year
  Sex: Female
  Weight: 56.7 kg

DRUGS (10)
  1. SYMBICORT PMDI [Suspect]
     Indication: CHRONIC OBSTRUCTIVE PULMONARY DISEASE
     Dosage: 160/405 MCG TWO PUFFS BID
     Route: 055
     Dates: start: 2008
  2. COMBIVENT [Concomitant]
     Indication: CHRONIC OBSTRUCTIVE PULMONARY DISEASE
  3. SPIRIVA [Concomitant]
     Indication: CHRONIC OBSTRUCTIVE PULMONARY DISEASE
  4. ALBUTEROL SULFATE [Concomitant]
     Indication: CHRONIC OBSTRUCTIVE PULMONARY DISEASE
  5. ALBUTEROL [Concomitant]
     Indication: CHRONIC OBSTRUCTIVE PULMONARY DISEASE
  6. CELEXA [Concomitant]
     Indication: DEPRESSION
  7. LYRICA [Concomitant]
     Indication: FIBROMYALGIA
  8. SINGULAIR [Concomitant]
  9. WELLBUTRIN [Concomitant]
     Indication: DEPRESSION
  10. SYNTHROID [Concomitant]
     Indication: HYPOTHYROIDISM

REACTIONS (8)
  - Dyspnoea [Recovered/Resolved]
  - Sinusitis [Unknown]
  - Panic attack [Recovered/Resolved]
  - Asthenia [Unknown]
  - Flushing [Unknown]
  - Fatigue [Not Recovered/Not Resolved]
  - Tachycardia [Unknown]
  - Drug dose omission [Unknown]
